FAERS Safety Report 16744118 (Version 3)
Quarter: 2019Q3

REPORT INFORMATION
  Report Type: Report from Study
  Country: None (occurrence: US)
  Receive Date: 20190827
  Receipt Date: 20190910
  Transmission Date: 20191005
  Serious: Yes (Other)
  Sender: FDA-Public Use
  Company Number: US-ABBVIE-19K-163-2902790-00

PATIENT
  Sex: Female
  Weight: 68.1 kg

DRUGS (1)
  1. CREON [Suspect]
     Active Substance: PANCRELIPASE AMYLASE\PANCRELIPASE LIPASE\PANCRELIPASE PROTEASE
     Indication: PANCREATIC FAILURE
     Dosage: 4 CAPSULES?4 TIMES / DAY WITH MEALS
     Route: 048
     Dates: start: 2017

REACTIONS (6)
  - Impaired gastric emptying [Unknown]
  - Foot operation [Unknown]
  - Weight increased [Unknown]
  - Faeces soft [Unknown]
  - Change of bowel habit [Unknown]
  - Concussion [Unknown]
